FAERS Safety Report 7690878-0 (Version None)
Quarter: 2011Q3

REPORT INFORMATION
  Report Type: 
  Country: None (occurrence: None)
  Receive Date: 20110818
  Receipt Date: 20110818
  Transmission Date: 20111222
  Serious: Yes (Hospitalization, Disabling, Other)
  Sender: FDA-Public Use
  Company Number: None

PATIENT
  Age: 67 Year
  Sex: Male
  Weight: 551.11 kg

DRUGS (2)
  1. ANDRODERM [Suspect]
     Indication: GYNAECOMASTIA
     Dosage: APPLY TO SKIN BEDTIME
     Route: 062
     Dates: start: 20110708, end: 20110729
  2. TESTOSTERONE INJECTION [Concomitant]

REACTIONS (4)
  - LYMPHADENOPATHY [None]
  - RASH PAPULAR [None]
  - URETERIC OBSTRUCTION [None]
  - PYREXIA [None]
